FAERS Safety Report 22069656 (Version 1)
Quarter: 2023Q1

REPORT INFORMATION
  Report Type: Spontaneous
  Country: US (occurrence: US)
  Receive Date: 20230307
  Receipt Date: 20230307
  Transmission Date: 20230418
  Serious: Yes (Death, Other)
  Sender: FDA-Public Use
  Company Number: US-TAKEDA-2022TUS060984

PATIENT

DRUGS (23)
  1. PANTOPRAZOLE [Suspect]
     Active Substance: PANTOPRAZOLE
     Indication: Gastrooesophageal reflux disease
     Dosage: 40 MILLIGRAM
     Route: 048
     Dates: start: 20170710
  2. DEXILANT [Suspect]
     Active Substance: DEXLANSOPRAZOLE
     Indication: Gastrooesophageal reflux disease
     Dosage: UNK
     Route: 048
     Dates: start: 2009, end: 2017
  3. DEXILANT [Suspect]
     Active Substance: DEXLANSOPRAZOLE
     Dosage: 60 MILLIGRAM
     Route: 048
     Dates: start: 20170823
  4. NEXIUM [Suspect]
     Active Substance: ESOMEPRAZOLE MAGNESIUM
     Indication: Gastrooesophageal reflux disease
     Dosage: UNK
     Route: 048
     Dates: start: 2009, end: 2017
  5. NEXIUM [Suspect]
     Active Substance: ESOMEPRAZOLE MAGNESIUM
     Dosage: 20 MILLIGRAM
     Route: 048
     Dates: start: 20090728, end: 20170623
  6. OMEPRAZOLE [Suspect]
     Active Substance: OMEPRAZOLE
     Indication: Gastrooesophageal reflux disease
     Dosage: 20 MILLIGRAM
     Route: 048
     Dates: start: 20121219, end: 20160628
  7. ESOMEPRAZOLE [Suspect]
     Active Substance: ESOMEPRAZOLE
     Indication: Gastrooesophageal reflux disease
     Dosage: 40 MILLIGRAM
     Route: 048
     Dates: start: 20140506, end: 20160628
  8. FLUOXETINE [Concomitant]
     Active Substance: FLUOXETINE HYDROCHLORIDE
     Indication: Depression
     Dosage: UNK
     Dates: start: 20100223, end: 20100921
  9. PROZAC [Concomitant]
     Active Substance: FLUOXETINE HYDROCHLORIDE
     Indication: Depression
     Dosage: UNK
     Dates: start: 20100223, end: 20100921
  10. HYDROCHLOROTHIAZIDE [Concomitant]
     Active Substance: HYDROCHLOROTHIAZIDE
     Indication: Diuretic therapy
     Dosage: UNK
     Dates: start: 20170803
  11. TRAMADOL [Concomitant]
     Active Substance: TRAMADOL
     Indication: Pain
     Dosage: UNK
     Dates: start: 20120110, end: 20120220
  12. ULTRA MAGNESIUM [Concomitant]
     Indication: Pain
     Dosage: UNK
     Dates: start: 20120110, end: 20120220
  13. LIPITOR [Concomitant]
     Active Substance: ATORVASTATIN CALCIUM
     Indication: Blood cholesterol abnormal
     Dosage: UNK
     Dates: start: 20131203, end: 20150911
  14. ROSUVASTATIN [Concomitant]
     Active Substance: ROSUVASTATIN
     Indication: Blood cholesterol abnormal
     Dosage: UNK
     Dates: start: 20091117, end: 20100218
  15. CRESTOR [Concomitant]
     Active Substance: ROSUVASTATIN CALCIUM
     Indication: Blood cholesterol abnormal
     Dosage: UNK
     Dates: start: 20091117, end: 20100218
  16. NAPROXEN [Concomitant]
     Active Substance: NAPROXEN
     Indication: Pain
     Dosage: UNK
     Dates: start: 20100429, end: 20100728
  17. NAPROSYN [Concomitant]
     Active Substance: NAPROXEN
     Indication: Pain
     Dosage: UNK
     Dates: start: 20100429, end: 20100728
  18. BACTRIM [Concomitant]
     Active Substance: SULFAMETHOXAZOLE\TRIMETHOPRIM
     Indication: Infection
     Dosage: UNK
     Dates: start: 20160313
  19. SULFAMETHOXAZOLE\TRIMETHOPRIM [Concomitant]
     Active Substance: SULFAMETHOXAZOLE\TRIMETHOPRIM
     Indication: Infection
     Dosage: UNK
     Dates: start: 20160313
  20. ERYTHROMYCIN [Concomitant]
     Active Substance: ERYTHROMYCIN
     Indication: Infection
     Dosage: UNK
     Dates: start: 20160731
  21. KEFLEX [Concomitant]
     Active Substance: CEPHALEXIN
     Indication: Infection
     Dosage: UNK
     Dates: start: 20160731
  22. CEPHALEX [CEFALEXIN] [Concomitant]
     Indication: Infection
     Dosage: UNK
     Dates: start: 20160731
  23. AMOXICILLIN [Concomitant]
     Active Substance: AMOXICILLIN
     Indication: Infection
     Dosage: UNK
     Dates: start: 20110208

REACTIONS (1)
  - Pancreatic carcinoma [Fatal]
